FAERS Safety Report 24994835 (Version 1)
Quarter: 2025Q1

REPORT INFORMATION
  Report Type: Spontaneous
  Country: FR (occurrence: FR)
  Receive Date: 20250221
  Receipt Date: 20250221
  Transmission Date: 20250409
  Serious: Yes (Life-Threatening, Other)
  Sender: RANBAXY
  Company Number: FR-AFSSAPS-NT2024001609

PATIENT
  Age: 29 Year
  Sex: Female
  Weight: 59.5 kg

DRUGS (2)
  1. ESOMEPRAZOLE [Suspect]
     Active Substance: ESOMEPRAZOLE
     Indication: Prophylaxis against gastrointestinal ulcer
     Route: 048
     Dates: start: 20240815, end: 202408
  2. PIROXICAM [Suspect]
     Active Substance: PIROXICAM
     Indication: Back pain
     Route: 048
     Dates: start: 20240815, end: 202408

REACTIONS (1)
  - Toxic epidermal necrolysis [Recovered/Resolved]

NARRATIVE: CASE EVENT DATE: 20240902
